FAERS Safety Report 19470329 (Version 1)
Quarter: 2021Q2

REPORT INFORMATION
  Report Type: Spontaneous
  Country: US (occurrence: US)
  Receive Date: 20210628
  Receipt Date: 20210628
  Transmission Date: 20210717
  Serious: No
  Sender: FDA-Public Use
  Company Number: US-TEVA-2021-US-1926770

PATIENT
  Sex: Female

DRUGS (1)
  1. DEXTROAMPHETAMINE SULFATE TEVA [Suspect]
     Active Substance: DEXTROAMPHETAMINE SULFATE
     Indication: ATTENTION DEFICIT HYPERACTIVITY DISORDER
     Route: 065
     Dates: start: 202106

REACTIONS (4)
  - Drug ineffective [Unknown]
  - Disturbance in attention [Unknown]
  - Laziness [Unknown]
  - Somnolence [Unknown]
